FAERS Safety Report 20919079 (Version 2)
Quarter: 2022Q3

REPORT INFORMATION
  Report Type: Spontaneous
  Country: US (occurrence: US)
  Receive Date: 20220606
  Receipt Date: 20220705
  Transmission Date: 20221026
  Serious: Yes (Other)
  Sender: FDA-Public Use
  Company Number: US-BAYER-2022A075308

PATIENT
  Age: 25 Year

DRUGS (1)
  1. MIRENA [Suspect]
     Active Substance: LEVONORGESTREL
     Dosage: 20?G/DAY
     Route: 015
     Dates: end: 20211028

REACTIONS (9)
  - Genital haemorrhage [None]
  - Nausea [None]
  - Vomiting [None]
  - Menstruation irregular [None]
  - Pelvic pain [Not Recovered/Not Resolved]
  - Complication associated with device [None]
  - Menopausal disorder [None]
  - Oestradiol decreased [None]
  - Peritoneal perforation [None]

NARRATIVE: CASE EVENT DATE: 20190204
